FAERS Safety Report 10385804 (Version 2)
Quarter: 2014Q3

REPORT INFORMATION
  Report Type: Spontaneous
  Country: BR (occurrence: BR)
  Receive Date: 20140814
  Receipt Date: 20140930
  Transmission Date: 20150326
  Serious: Yes (Other)
  Sender: FDA-Public Use
  Company Number: BR-ELI_LILLY_AND_COMPANY-BR201408001764

PATIENT
  Age: 48 Year
  Sex: Male
  Weight: 97 kg

DRUGS (10)
  1. HUMALOG [Suspect]
     Active Substance: INSULIN LISPRO
     Indication: TYPE 2 DIABETES MELLITUS
     Dosage: 1 IU, TID
     Route: 058
     Dates: start: 1999
  2. CRESTOR [Concomitant]
     Active Substance: ROSUVASTATIN CALCIUM
     Indication: BLOOD CHOLESTEROL
     Dosage: 10 MG, QD
     Route: 065
  3. ALOPURINOL [Concomitant]
     Active Substance: ALLOPURINOL
     Indication: BLOOD URIC ACID
     Dosage: 10 MG, QD
     Route: 065
     Dates: start: 20140624
  4. LEVEMIR [Concomitant]
     Active Substance: INSULIN DETEMIR
     Dosage: 1 IU, TID
     Route: 065
     Dates: start: 201407
  5. VICTOZA [Concomitant]
     Active Substance: LIRAGLUTIDE
     Dosage: UNK, UNKNOWN
     Route: 065
  6. HUMULIN N [Suspect]
     Active Substance: INSULIN HUMAN
     Indication: TYPE 2 DIABETES MELLITUS
     Dosage: UNK, UNKNOWN
     Route: 065
  7. BENERVA [Concomitant]
     Active Substance: THIAMINE
     Indication: NICOTINAMIDE DECREASED
     Dosage: 300 MG, BID
     Route: 065
  8. VITAMIN D [Concomitant]
     Active Substance: CHOLECALCIFEROL
     Indication: PRODUCT USED FOR UNKNOWN INDICATION
     Dosage: UNK, QD
     Route: 065
  9. DIOVAN [Concomitant]
     Active Substance: VALSARTAN
     Indication: BLOOD PRESSURE
     Dosage: 1 DF, QD
     Route: 065
  10. BENERVA [Concomitant]
     Active Substance: THIAMINE
     Indication: VITAMIN B12 DEFICIENCY

REACTIONS (14)
  - Limb injury [Not Recovered/Not Resolved]
  - Weight increased [Unknown]
  - Nausea [Unknown]
  - Renal impairment [Unknown]
  - Abdominal distension [Unknown]
  - Blood glucose increased [Unknown]
  - Hepatic failure [Unknown]
  - Weight fluctuation [Not Recovered/Not Resolved]
  - Eructation [Unknown]
  - Neuropathy peripheral [Unknown]
  - Decreased appetite [Unknown]
  - Hunger [Not Recovered/Not Resolved]
  - Swelling [Unknown]
  - Sensory loss [Unknown]

NARRATIVE: CASE EVENT DATE: 201404
